FAERS Safety Report 12455839 (Version 2)
Quarter: 2016Q3

REPORT INFORMATION
  Report Type: Spontaneous
  Country: DE (occurrence: DE)
  Receive Date: 20160610
  Receipt Date: 20160707
  Transmission Date: 20161109
  Serious: Yes (Hospitalization, Other)
  Sender: FDA-Public Use
  Company Number: DE-BAYER-2016-113502

PATIENT
  Age: 25 Year
  Sex: Female
  Weight: 70 kg

DRUGS (1)
  1. MIRENA [Suspect]
     Active Substance: LEVONORGESTREL
     Indication: CONTRACEPTION
     Dosage: 20 MCG/24HR, CONT
     Route: 015
     Dates: start: 20150311, end: 201510

REACTIONS (10)
  - Metastases to liver [Unknown]
  - Ovarian enlargement [None]
  - Peritoneal carcinoma metastatic [Unknown]
  - Vaginal haemorrhage [Unknown]
  - Metastases to pelvis [Unknown]
  - Ovarian abscess [Unknown]
  - Vaginal haemorrhage [Unknown]
  - Ovarian cyst [Unknown]
  - Metastases to diaphragm [Unknown]
  - Abdominal pain lower [Unknown]

NARRATIVE: CASE EVENT DATE: 201504
